FAERS Safety Report 25450725 (Version 2)
Quarter: 2025Q2

REPORT INFORMATION
  Report Type: Spontaneous
  Country: PT (occurrence: PT)
  Receive Date: 20250618
  Receipt Date: 20250626
  Transmission Date: 20250717
  Serious: Yes (Other)
  Sender: AUROBINDO
  Company Number: PT-AstraZeneca-CH-00780936A

PATIENT
  Age: 70 Year
  Sex: Female
  Weight: 55 kg

DRUGS (12)
  1. RIVAROXABAN [Suspect]
     Active Substance: RIVAROXABAN
     Indication: Non-small cell lung cancer
     Dosage: 20 MILLIGRAM, ONCE A DAY
     Route: 048
     Dates: start: 20240723
  2. PACLITAXEL [Suspect]
     Active Substance: PACLITAXEL
     Indication: Non-small cell lung cancer
     Route: 065
  3. PACLITAXEL [Suspect]
     Active Substance: PACLITAXEL
     Indication: Endometrial cancer
     Route: 042
  4. CARBOPLATIN [Suspect]
     Active Substance: CARBOPLATIN
     Indication: Non-small cell lung cancer
     Route: 065
  5. CARBOPLATIN [Suspect]
     Active Substance: CARBOPLATIN
     Indication: Endometrial cancer
     Route: 042
  6. LYNPARZA [Suspect]
     Active Substance: OLAPARIB
     Indication: Endometrial cancer recurrent
     Dosage: 600 MILLIGRAM, ONCE A DAY
     Route: 048
     Dates: start: 20241220, end: 20241228
  7. IMFINZI [Suspect]
     Active Substance: DURVALUMAB
     Indication: Endometrial cancer recurrent
     Route: 042
     Dates: start: 20240807, end: 20241121
  8. IMFINZI [Suspect]
     Active Substance: DURVALUMAB
     Route: 042
     Dates: start: 20241219
  9. OLAPARIB [Suspect]
     Active Substance: OLAPARIB
     Indication: Endometrial cancer recurrent
     Dosage: 600 MILLIGRAM, ONCE A DAY (300 MILLIGRAM, BID)
     Route: 048
     Dates: start: 20241220, end: 20241228
  10. DURVALUMAB [Suspect]
     Active Substance: DURVALUMAB
     Indication: Endometrial cancer recurrent
     Route: 042
     Dates: start: 20240807
  11. DURVALUMAB [Suspect]
     Active Substance: DURVALUMAB
     Indication: Endometrial cancer
     Route: 042
     Dates: start: 20241219
  12. RIVAROXABAN [Concomitant]
     Active Substance: RIVAROXABAN
     Indication: Non-small cell lung cancer
     Dosage: 20 MILLIGRAM, ONCE A DAY
     Route: 048
     Dates: start: 20240723

REACTIONS (5)
  - Malignant neoplasm progression [Unknown]
  - Anaemia [Recovering/Resolving]
  - Alopecia [Recovered/Resolved]
  - Oedema peripheral [Recovered/Resolved]
  - Rash maculo-papular [Recovered/Resolved]

NARRATIVE: CASE EVENT DATE: 20240829
